FAERS Safety Report 6441856-0 (Version None)
Quarter: 2009Q4

REPORT INFORMATION
  Report Type: 
  Country: None (occurrence: None)
  Receive Date: 20091116
  Receipt Date: 20090917
  Transmission Date: 20100525
  Serious: Yes (Other)
  Sender: FDA-Public Use
  Company Number: CA-ASTRAZENECA-2009UW19216

PATIENT
  Sex: Male
  Weight: 77.6 kg

DRUGS (8)
  1. CRESTOR [Suspect]
     Route: 048
     Dates: start: 20070101, end: 20090707
  2. EPIVAL [Concomitant]
  3. OLANZAPINE [Concomitant]
  4. LITHIUM CARBONATE [Concomitant]
  5. CLONAZEPAM [Concomitant]
  6. IBUPROFEN [Concomitant]
     Indication: RHEUMATOID ARTHRITIS
  7. DOCUSATE SODIUM [Concomitant]
  8. ALLOPURINOL [Concomitant]
     Dates: start: 19700101

REACTIONS (2)
  - ARTHRALGIA [None]
  - CHROMATURIA [None]
